FAERS Safety Report 8605395 (Version 5)
Quarter: 2012Q4

REPORT INFORMATION
  Report Type: 
  Country: US (occurrence: US)
  Receive Date: 20120608
  Receipt Date: 20120926
  Transmission Date: 20130627
  Serious: Yes (Hospitalization, Disabling, Other)
  Sender: FDA-Public Use
  Company Number: US-009507513-1206USA00884

PATIENT

DRUGS (5)
  1. FOSAMAX [Suspect]
     Indication: OSTEOPOROSIS
     Dosage: 70 mg, UNK
     Route: 048
     Dates: start: 200105, end: 200608
  2. FOSAMAX [Suspect]
     Dosage: 70 mg, qw
     Route: 048
     Dates: start: 2010
  3. RECLAST [Suspect]
     Indication: OSTEOPOROSIS
     Dosage: 5 mg, yearly
     Route: 042
     Dates: start: 201105
  4. PREDNISONE [Concomitant]
     Indication: PRODUCT USED FOR UNKNOWN INDICATION
     Dosage: 5 mg, UNK
     Route: 048
  5. ASPIRIN [Concomitant]
     Indication: PRODUCT USED FOR UNKNOWN INDICATION
     Dosage: 81 mg, qd
     Route: 048

REACTIONS (135)
  - Femur fracture [Not Recovered/Not Resolved]
  - Idiopathic pulmonary fibrosis [Unknown]
  - Deep vein thrombosis [Recovered/Resolved]
  - Ventricular tachycardia [Recovering/Resolving]
  - Hypertension [Unknown]
  - Hip surgery [Unknown]
  - Lung transplant [Recovering/Resolving]
  - Tibia fracture [Unknown]
  - Osteoarthritis [Unknown]
  - Chest pain [Recovering/Resolving]
  - Microcytic anaemia [Unknown]
  - External fixation of fracture [Unknown]
  - Apnoea [Unknown]
  - Meningitis viral [Recovering/Resolving]
  - Renal failure [Unknown]
  - Arthralgia [Unknown]
  - Vitamin D deficiency [Unknown]
  - Osteoarthritis [Unknown]
  - Compression fracture [Unknown]
  - Osteoarthritis [Unknown]
  - Syncope [Unknown]
  - Iron deficiency [Not Recovered/Not Resolved]
  - Thrombocytopenia [Unknown]
  - Iron deficiency anaemia [Not Recovered/Not Resolved]
  - Liver function test abnormal [Unknown]
  - Synovitis [Unknown]
  - Tendon disorder [Unknown]
  - Transplant rejection [Recovered/Resolved]
  - Haemosiderosis [Unknown]
  - Obliterative bronchiolitis [Recovered/Resolved]
  - Aortic arteriosclerosis [Unknown]
  - Spinal osteoarthritis [Unknown]
  - Arthritis [Unknown]
  - Fibrosis [Unknown]
  - Cataract operation [Unknown]
  - Fractured coccyx [Unknown]
  - Urinary tract infection [Unknown]
  - Nail operation [Unknown]
  - Oesophageal disorder [Recovering/Resolving]
  - Sinusitis [Unknown]
  - Dyspnoea [Unknown]
  - Nocturia [Unknown]
  - Neuropathy peripheral [Unknown]
  - Synovial cyst [Unknown]
  - Radius fracture [Unknown]
  - Hallucination [Unknown]
  - Ankle fracture [Unknown]
  - Lower limb fracture [Unknown]
  - Hyperlipidaemia [Unknown]
  - Injection site erythema [Recovered/Resolved]
  - Injection site pain [Recovered/Resolved]
  - Tooth fracture [Unknown]
  - Meniscus injury [Unknown]
  - Breast pain [Unknown]
  - Cardiac valve fibroelastoma [Unknown]
  - Pulmonary hypertension [Unknown]
  - Influenza [Unknown]
  - Antinuclear antibody positive [Unknown]
  - Pneumonia haemophilus [Unknown]
  - Bronchitis haemophilus [Unknown]
  - Scleroderma [Unknown]
  - Alveolitis allergic [Unknown]
  - Dry mouth [Unknown]
  - Salivary gland disorder [Unknown]
  - Visual impairment [Unknown]
  - Epistaxis [Unknown]
  - Extrasystoles [Unknown]
  - Antinuclear antibody [Unknown]
  - Memory impairment [Unknown]
  - Chronic obstructive pulmonary disease [Not Recovered/Not Resolved]
  - Anxiety [Unknown]
  - Foot fracture [Unknown]
  - Sepsis [Unknown]
  - Gastrointestinal disorder [Unknown]
  - Insomnia [Unknown]
  - Culture positive [Unknown]
  - Cataract [Unknown]
  - Tremor [Recovering/Resolving]
  - Sinus congestion [Unknown]
  - Hypertensive heart disease [Unknown]
  - Bronchitis [Unknown]
  - Faecal incontinence [Unknown]
  - Diastolic dysfunction [Unknown]
  - Large intestine polyp [Unknown]
  - Fatigue [Unknown]
  - Vulvovaginal discomfort [Not Recovered/Not Resolved]
  - Fall [Unknown]
  - Muscle twitching [Unknown]
  - Wrist deformity [Unknown]
  - Finger deformity [Unknown]
  - Swelling [Unknown]
  - Gastrooesophageal reflux disease [Unknown]
  - Nausea [Unknown]
  - Back pain [Not Recovered/Not Resolved]
  - Oedema peripheral [Unknown]
  - Oedema peripheral [Recovering/Resolving]
  - Constipation [Unknown]
  - Pain in extremity [Unknown]
  - Rhinitis allergic [Unknown]
  - Dysthymic disorder [Unknown]
  - Cor pulmonale chronic [Unknown]
  - Gastrointestinal haemorrhage [Unknown]
  - Dizziness [Unknown]
  - Dysphoria [Unknown]
  - Ingrowing nail [Unknown]
  - Hypertensive crisis [Recovered/Resolved]
  - Headache [Unknown]
  - Hypertension [Not Recovered/Not Resolved]
  - Presyncope [Unknown]
  - Hypotension [Unknown]
  - Atrial fibrillation [Unknown]
  - Cardiac ablation [Unknown]
  - Palpitations [Recovering/Resolving]
  - Chest discomfort [Recovering/Resolving]
  - Renal failure acute [Recovered/Resolved]
  - Pyrexia [Recovered/Resolved]
  - Meningism [Recovering/Resolving]
  - Hypogammaglobulinaemia [Unknown]
  - Hyperkalaemia [Unknown]
  - Sleep apnoea syndrome [Unknown]
  - Dermatitis [Unknown]
  - Bronchitis [Unknown]
  - Hyponatraemia [Unknown]
  - Biopsy lung [Unknown]
  - Haemorrhagic anaemia [Recovering/Resolving]
  - Supraventricular tachycardia [Unknown]
  - Biopsy lung [Unknown]
  - Dehydration [Unknown]
  - Hypochloraemia [Unknown]
  - Leukocytosis [Recovering/Resolving]
  - Biopsy [Unknown]
  - Multiple injuries [None]
  - Emotional distress [None]
  - Economic problem [None]
  - Pain [None]
